FAERS Safety Report 6796112-8 (Version None)
Quarter: 2010Q2

REPORT INFORMATION
  Report Type: 
  Country: None (occurrence: None)
  Receive Date: 20100625
  Receipt Date: 20090708
  Transmission Date: 20101027
  Serious: Yes (Death, Other)
  Sender: FDA-Public Use
  Company Number: US-BAYER-200831449NA

PATIENT
  Age: 57 Year
  Sex: Male
  Weight: 87 kg

DRUGS (31)
  1. MAGNEVIST [Suspect]
     Indication: ANGIOGRAM
     Dosage: TOTAL DAILY DOSE: 30 ML
     Dates: start: 20061109, end: 20061109
  2. OMNISCAN [Suspect]
     Indication: NUCLEAR MAGNETIC RESONANCE IMAGING
  3. OMNISCAN [Suspect]
     Dosage: AS USED: 20 ML
     Dates: start: 20060629, end: 20060629
  4. OPTIMARK [Suspect]
     Indication: NUCLEAR MAGNETIC RESONANCE IMAGING
  5. MULTIHANCE [Suspect]
     Indication: NUCLEAR MAGNETIC RESONANCE IMAGING
  6. PROHANCE [Suspect]
     Indication: NUCLEAR MAGNETIC RESONANCE IMAGING
  7. UNSPECIFIED GADOLINIUM BASED CONTRAST AGENT [Suspect]
     Indication: VENOGRAM
     Dosage: AS USED: 7 ML
     Dates: start: 20050901, end: 20050901
  8. CELLCEPT [Concomitant]
     Dates: start: 19950101, end: 20070101
  9. NEORAL [Concomitant]
     Dates: start: 19950101, end: 20070101
  10. COZAAR [Concomitant]
     Dates: start: 19950101, end: 20070101
  11. LOPRESSOR [Concomitant]
     Dates: start: 19970101, end: 20070101
  12. LIPITOR [Concomitant]
     Dates: start: 19950101, end: 20070101
  13. CHOLESTYRAMINE [Concomitant]
     Dates: start: 19950101, end: 20070101
  14. ZETIA [Concomitant]
     Dates: start: 19950101, end: 20070101
  15. INSULIN NOVOLIN 7/30 [Concomitant]
     Dates: start: 19950101, end: 20070101
  16. HEPARIN [Concomitant]
     Dates: start: 19950101, end: 20070101
  17. EPOETIN ALFA [Concomitant]
  18. ATENOLOL [Concomitant]
     Dates: start: 19950101, end: 20070101
  19. ADALAT SR [Concomitant]
     Dates: start: 19950101, end: 20070101
  20. DIALYVITE [Concomitant]
     Dates: start: 19950101, end: 20070101
  21. ENALAPRIL MALEATE [Concomitant]
     Dates: start: 19950101, end: 20070101
  22. ISOSORBIDE DINITRATE [Concomitant]
     Dates: start: 19950101, end: 20070101
  23. PREDNISONE [Concomitant]
     Dates: start: 19950101, end: 20070101
  24. NEURONTIN [Concomitant]
  25. CHOLESTYRAMINE [Concomitant]
     Dosage: 4 GM PACKS BID
  26. ALBUTEROL [Concomitant]
  27. ALLOPURINOL [Concomitant]
     Dosage: TOTAL DAILY DOSE: 100 MG
  28. PROTONIX [Concomitant]
  29. NITROGLYCERIN [Concomitant]
     Dates: start: 19950101, end: 20070101
  30. NIFEDIPINE LX [Concomitant]
     Dates: start: 19950101, end: 20070101
  31. IODINATED CONTRAST [Concomitant]
     Dosage: 9 ML, WITH 7 ML OF UNKNOWN GBCA

REACTIONS (16)
  - ANXIETY [None]
  - EMOTIONAL DISTRESS [None]
  - ERYTHEMA [None]
  - EXTREMITY CONTRACTURE [None]
  - FIBROSIS [None]
  - HYPOAESTHESIA [None]
  - INJURY [None]
  - JOINT CONTRACTURE [None]
  - JOINT RANGE OF MOTION DECREASED [None]
  - MUSCULAR WEAKNESS [None]
  - MUSCULOSKELETAL STIFFNESS [None]
  - NEPHROGENIC SYSTEMIC FIBROSIS [None]
  - OEDEMA PERIPHERAL [None]
  - PAIN IN EXTREMITY [None]
  - SKIN HYPERTROPHY [None]
  - SKIN TIGHTNESS [None]
